FAERS Safety Report 6040948-8 (Version None)
Quarter: 2009Q1

REPORT INFORMATION
  Report Type: 
  Country: None (occurrence: None)
  Receive Date: 20090116
  Receipt Date: 20080723
  Transmission Date: 20090719
  Serious: No
  Sender: FDA-Public Use
  Company Number: US-BRISTOL-MYERS SQUIBB COMPANY-14253702

PATIENT
  Age: 13 Year
  Sex: Male
  Weight: 47 kg

DRUGS (2)
  1. ABILIFY [Suspect]
     Dosage: HAS BEEN TAKING 2 YEARS AGO
  2. FOCALIN [Concomitant]

REACTIONS (2)
  - DEPRESSION [None]
  - TARDIVE DYSKINESIA [None]
